FAERS Safety Report 11226338 (Version 2)
Quarter: 2015Q3

REPORT INFORMATION
  Report Type: Spontaneous
  Country: DK (occurrence: IT)
  Receive Date: 20150629
  Receipt Date: 20150721
  Transmission Date: 20151125
  Serious: Yes (Hospitalization)
  Sender: FDA-Public Use
  Company Number: IT-FRI-1000077776

PATIENT
  Age: 51 Year
  Sex: Female

DRUGS (6)
  1. ESCITALOPRAM [Suspect]
     Active Substance: ESCITALOPRAM OXALATE
     Indication: PRODUCT USED FOR UNKNOWN INDICATION
     Route: 048
  2. ESCITALOPRAM [Suspect]
     Active Substance: ESCITALOPRAM OXALATE
     Dosage: OVERDOSE: 280 MG ONCE
     Route: 048
  3. LORAZEPAM 1 MG [Suspect]
     Active Substance: LORAZEPAM
     Dosage: OVERDOSE: 20 MG ONCE
     Route: 048
     Dates: start: 20150531, end: 20150531
  4. BENEXOL COMPRESSE GASTRORESISTENTI/VITAMIN B COMPLEX [Suspect]
     Active Substance: CYANOCOBALAMIN\PYRIDOXINE\THIAMINE
     Dosage: OVERDOSE: 6 DOSAGE FORMS ONCE
     Route: 048
     Dates: start: 20150531, end: 20150531
  5. LORAZEPAM 1 MG [Suspect]
     Active Substance: LORAZEPAM
     Indication: PRODUCT USED FOR UNKNOWN INDICATION
     Route: 048
  6. BENEXOL COMPRESSE GASTRORESISTENTI/VITAMIN B COMPLEX [Suspect]
     Active Substance: CYANOCOBALAMIN\PYRIDOXINE\THIAMINE
     Indication: PRODUCT USED FOR UNKNOWN INDICATION
     Route: 048

REACTIONS (5)
  - Drug abuse [Unknown]
  - Electrocardiogram ST segment elevation [Unknown]
  - Electrocardiogram QT prolonged [Unknown]
  - Suicide attempt [Unknown]
  - Intentional overdose [Unknown]

NARRATIVE: CASE EVENT DATE: 20150531
